FAERS Safety Report 5272448-7 (Version None)
Quarter: 2007Q1

REPORT INFORMATION
  Report Type: 
  Country: None (occurrence: None)
  Receive Date: 20070320
  Receipt Date: 20070320
  Transmission Date: 20070707
  Serious: No
  Sender: FDA-Public Use
  Company Number: None

PATIENT
  Age: 72 Year
  Sex: Female
  Weight: 60.782 kg

DRUGS (2)
  1. FOSAMAX [Suspect]
     Indication: BONE DENSITY DECREASED
     Dosage: 1 WEEKLY PO
     Route: 048
     Dates: start: 20020101, end: 20040101
  2. ACTONEL [Suspect]
     Indication: BONE DENSITY DECREASED
     Dosage: 1 WEEKLY PO
     Route: 048
     Dates: start: 20040101, end: 20070115

REACTIONS (1)
  - OSTEONECROSIS [None]
